FAERS Safety Report 6659923-5 (Version None)
Quarter: 2010Q1

REPORT INFORMATION
  Report Type: 
  Country: None (occurrence: None)
  Receive Date: 20100326
  Receipt Date: 20100311
  Transmission Date: 20100710
  Serious: Yes (Other)
  Sender: FDA-Public Use
  Company Number: 2010SCPR000436

PATIENT
  Age: 80 Year
  Sex: Male

DRUGS (1)
  1. CABERGOLINE [Suspect]
     Indication: PARKINSON'S DISEASE
     Dosage: 3 MG DAILY

REACTIONS (4)
  - C-REACTIVE PROTEIN INCREASED [None]
  - LYMPHOCYTE STIMULATION TEST POSITIVE [None]
  - OEDEMA [None]
  - PLEURAL EFFUSION [None]
